FAERS Safety Report 13733609 (Version 1)
Quarter: 2017Q3

REPORT INFORMATION
  Report Type: Spontaneous
  Country: CN (occurrence: CN)
  Receive Date: 20170707
  Receipt Date: 20170707
  Transmission Date: 20171127
  Serious: Yes (Disabling)
  Sender: FDA-Public Use
  Company Number: CN-PFIZER INC-2017294622

PATIENT
  Age: 21 Month
  Sex: Male
  Weight: 12.3 kg

DRUGS (1)
  1. METHOTREXATE. [Suspect]
     Active Substance: METHOTREXATE
     Indication: CHEMOTHERAPY
     Dosage: 2 G, 1X/DAY
     Route: 041
     Dates: start: 20170502, end: 20170502

REACTIONS (4)
  - Drug level above therapeutic [Recovering/Resolving]
  - Dysphoria [Unknown]
  - Mucosal erosion [Recovering/Resolving]
  - Vomiting [Recovering/Resolving]

NARRATIVE: CASE EVENT DATE: 20170503
